FAERS Safety Report 16654990 (Version 1)
Quarter: 2019Q3

REPORT INFORMATION
  Report Type: Spontaneous
  Country: US (occurrence: US)
  Receive Date: 20190801
  Receipt Date: 20190801
  Transmission Date: 20191004
  Serious: No
  Sender: FDA-Public Use
  Company Number: US-AUROBINDO-AUR-APL-2019-002817

PATIENT

DRUGS (2)
  1. ALPRAZOLAM EXTENDED-RELEASE TABLETS 1MG [Suspect]
     Active Substance: ALPRAZOLAM
     Dosage: 1 TABLET FOR EVERY SIX HOURS
     Route: 065
  2. ALPRAZOLAM EXTENDED-RELEASE TABLETS 1MG [Suspect]
     Active Substance: ALPRAZOLAM
     Indication: INJURY
     Dosage: 1 DOSAGE FORM, DAILY
     Route: 065
     Dates: start: 20190103

REACTIONS (4)
  - Product substitution issue [Unknown]
  - Overdose [Unknown]
  - Therapeutic product effect decreased [Unknown]
  - Nausea [Unknown]
